FAERS Safety Report 12194954 (Version 4)
Quarter: 2016Q2

REPORT INFORMATION
  Report Type: Spontaneous
  Country: SE (occurrence: SE)
  Receive Date: 20160321
  Receipt Date: 20160422
  Transmission Date: 20160815
  Serious: Yes (Other)
  Sender: FDA-Public Use
  Company Number: SE-SA-2015SA013929

PATIENT
  Sex: Female

DRUGS (2)
  1. ACICLOVIR [Concomitant]
     Active Substance: ACYCLOVIR
     Indication: PROPHYLAXIS
     Dates: start: 2015
  2. LEMTRADA [Suspect]
     Active Substance: ALEMTUZUMAB
     Indication: MULTIPLE SCLEROSIS
     Route: 041
     Dates: start: 20150126, end: 20150130

REACTIONS (21)
  - Disease progression [Unknown]
  - Menorrhagia [Not Recovered/Not Resolved]
  - Rash [Not Recovered/Not Resolved]
  - Oral herpes [Recovered/Resolved]
  - Dental plaque [Not Recovered/Not Resolved]
  - Dyspnoea [Unknown]
  - Multiple sclerosis relapse [Unknown]
  - Erythema [Not Recovered/Not Resolved]
  - Fine motor skill dysfunction [Not Recovered/Not Resolved]
  - Pruritus [Unknown]
  - Urticaria [Recovered/Resolved]
  - Palpitations [Not Recovered/Not Resolved]
  - Gingival bleeding [Not Recovered/Not Resolved]
  - Gait disturbance [Not Recovered/Not Resolved]
  - Cytology abnormal [Not Recovered/Not Resolved]
  - Flushing [Unknown]
  - Erythema [Unknown]
  - Sinusitis [Unknown]
  - Pain in extremity [Not Recovered/Not Resolved]
  - Mobility decreased [Not Recovered/Not Resolved]
  - Balance disorder [Not Recovered/Not Resolved]

NARRATIVE: CASE EVENT DATE: 2015
